FAERS Safety Report 13737611 (Version 4)
Quarter: 2017Q3

REPORT INFORMATION
  Report Type: Spontaneous
  Country: US (occurrence: US)
  Receive Date: 20170710
  Receipt Date: 20170908
  Transmission Date: 20171127
  Serious: Yes (Hospitalization, Other)
  Sender: FDA-Public Use
  Company Number: US-SAOL THERAPEUTICS-2016SAO00279

PATIENT
  Age: 42 Year
  Sex: Male

DRUGS (3)
  1. BACLOFEN. [Suspect]
     Active Substance: BACLOFEN
     Indication: MUSCLE SPASTICITY
     Dosage: 399.9 ?G, \DAY
  2. BACLOFEN. [Suspect]
     Active Substance: BACLOFEN
     Dosage: 300 ?G/ML, \DAY
  3. BACLOFEN. [Suspect]
     Active Substance: BACLOFEN
     Dosage: 300.2 ?G/ML, \DAY
     Route: 037
     Dates: start: 2017

REACTIONS (16)
  - Hypotonia [Unknown]
  - Swelling [Unknown]
  - Malaise [Unknown]
  - Mental status changes [Unknown]
  - Delirium [Unknown]
  - Gait disturbance [Unknown]
  - Device occlusion [None]
  - Asthenia [Unknown]
  - Device failure [Unknown]
  - Anxiety [Unknown]
  - Insomnia [Unknown]
  - Gait inability [Not Recovered/Not Resolved]
  - Hypoaesthesia [Unknown]
  - Syncope [Recovered/Resolved]
  - Dizziness [Unknown]
  - Pain [Unknown]

NARRATIVE: CASE EVENT DATE: 20160713
